FAERS Safety Report 9092238 (Version 1)
Quarter: 2013Q1

REPORT INFORMATION
  Report Type: Spontaneous
  Country: US (occurrence: US)
  Receive Date: 20130131
  Receipt Date: 20130131
  Transmission Date: 20140127
  Serious: No
  Sender: FDA-Public Use
  Company Number: US-009507513-1301USA012482

PATIENT
  Sex: Female

DRUGS (6)
  1. PROVENTIL [Suspect]
     Indication: ASTHMA
     Dosage: 2 PUFFS IN MORNING
  2. ZOCOR [Concomitant]
  3. METOPROLOL [Concomitant]
  4. PRILOSEC [Concomitant]
  5. IMDUR [Concomitant]
  6. NITROFURANTOIN [Concomitant]

REACTIONS (3)
  - Myalgia [Not Recovered/Not Resolved]
  - Influenza [Not Recovered/Not Resolved]
  - Cough [Not Recovered/Not Resolved]
